FAERS Safety Report 9434356 (Version 1)
Quarter: 2013Q3

REPORT INFORMATION
  Report Type: Spontaneous
  Country: GB (occurrence: GB)
  Receive Date: 20130801
  Receipt Date: 20130801
  Transmission Date: 20140515
  Serious: Yes (Other)
  Sender: FDA-Public Use
  Company Number: GB-009507513-1307GBR013221

PATIENT
  Age: 65 Year
  Sex: Female
  Weight: 58 kg

DRUGS (4)
  1. SINEMET PLUS 25 MG/100 MG TABLETS [Suspect]
     Dosage: 1 DF, TID
     Route: 048
     Dates: start: 20130518
  2. AMITRIPTYLINE HYDROCHLORIDE [Concomitant]
     Dosage: 10 MG, QD
  3. AZILECT [Concomitant]
     Indication: PARKINSON^S DISEASE
     Dosage: 1 MG, QD
  4. MIRAPEXIN [Concomitant]
     Indication: PARKINSON^S DISEASE
     Dosage: 2.62 MG, QD

REACTIONS (8)
  - Musculoskeletal stiffness [Recovered/Resolved]
  - Muscle spasms [Recovered/Resolved]
  - Dyspnoea [Recovered/Resolved]
  - Gait disturbance [Recovered/Resolved]
  - Paraesthesia [Recovered/Resolved]
  - Fatigue [Recovered/Resolved]
  - Drug ineffective [Unknown]
  - Product substitution issue [Unknown]
